FAERS Safety Report 8861605 (Version 1)
Quarter: 2012Q4

REPORT INFORMATION
  Report Type: 
  Country: US (occurrence: US)
  Receive Date: 20121025
  Receipt Date: 20121025
  Transmission Date: 20130627
  Serious: No
  Sender: FDA-Public Use
  Company Number: US-AMGEN-USASP2012017781

PATIENT
  Age: 50 Year
  Sex: Female

DRUGS (7)
  1. ENBREL [Suspect]
     Indication: PRODUCT USED FOR UNKNOWN INDICATION
     Dosage: 50 mg, qwk
     Route: 058
  2. HYDROCHLOROTH [Concomitant]
     Dosage: 25 mg, UNK
  3. LOVAZA [Concomitant]
     Dosage: 1 g, UNK
  4. WELLBUTRIN [Concomitant]
     Dosage: 100 mg, UNK
  5. ARTHROTEC [Concomitant]
  6. YASMIN 28 [Concomitant]
  7. TRAMADOL HCL [Concomitant]
     Dosage: 50 mg, UNK

REACTIONS (1)
  - Herpes zoster [Unknown]
